FAERS Safety Report 17015601 (Version 1)
Quarter: 2019Q4

REPORT INFORMATION
  Report Type: Spontaneous
  Country: FR (occurrence: FR)
  Receive Date: 20191111
  Receipt Date: 20191111
  Transmission Date: 20200122
  Serious: Yes (Other)
  Sender: FDA-Public Use
  Company Number: FR-PFIZER INC-2019477133

PATIENT
  Age: 18 Year
  Sex: Male

DRUGS (4)
  1. XANAX [Suspect]
     Active Substance: ALPRAZOLAM
     Dosage: 2 DF, DAILY
     Route: 048
     Dates: start: 201908
  2. PHENERGAN [Suspect]
     Active Substance: PROMETHAZINE HYDROCHLORIDE
     Dosage: 2 DF, 3X/DAY, (2 TABETS 3X/DAY WITH EUPHON)
     Route: 048
     Dates: start: 201908
  3. TRAMADOL HCL [Suspect]
     Active Substance: TRAMADOL HYDROCHLORIDE
     Dosage: 1 DF (1 TABLET), 2 TIMES/WEEK
     Route: 048
     Dates: start: 20190927
  4. EUPHON [CODEINE;SISYMBRIUM OFFICINALE] [Suspect]
     Active Substance: CODEINE\SISYMBRIUM OFFICINALE WHOLE
     Dosage: 3 GLASSES/DAY (1 FLACON OF EUPHON + 2 TABLETS OF PHENERGAN + SPRITE QUANTITY SUFFICIENT FOR 1L)
     Route: 048
     Dates: start: 201908

REACTIONS (2)
  - Drug dependence [Not Recovered/Not Resolved]
  - Drug abuse [Not Recovered/Not Resolved]

NARRATIVE: CASE EVENT DATE: 201908
